FAERS Safety Report 24297820 (Version 1)
Quarter: 2024Q3

REPORT INFORMATION
  Report Type: Spontaneous
  Country: IT (occurrence: IT)
  Receive Date: 20240909
  Receipt Date: 20240909
  Transmission Date: 20241016
  Serious: Yes (Hospitalization)
  Sender: MYLAN
  Company Number: None

PATIENT
  Age: 85 Year
  Sex: Female

DRUGS (9)
  1. LINEZOLID [Suspect]
     Active Substance: LINEZOLID
     Indication: Infection
     Dosage: 600 MILLIGRAM (X 2)
     Route: 048
     Dates: start: 20240710
  2. KCL [Concomitant]
     Active Substance: POTASSIUM CHLORIDE
     Dosage: 600 MILLIGRAM, Q8H (600 MG 1 TABLET 8 HOURS)
     Route: 065
  3. LINAGLIPTIN [Concomitant]
     Active Substance: LINAGLIPTIN
     Dosage: 5 MILLIGRAM (5 MG 1 TABLET 12PM)
     Route: 065
  4. GLICLAZIDE [Concomitant]
     Active Substance: GLICLAZIDE
     Dosage: 60 MILLIGRAM (60 MG 1 TABLET 12PM)
     Route: 065
  5. HYDROCHLOROTHIAZIDE\OLMESARTAN MEDOXOMIL [Concomitant]
     Active Substance: HYDROCHLOROTHIAZIDE\OLMESARTAN MEDOXOMIL
     Dosage: 1 DOSAGE FORM, Q8H (OLMESARTAN 20 MG / HYDROCHLOROTHIAZIDE 12.5 MG 1 TABLET 8 HOURS)
     Route: 065
  6. RIVAROXABAN [Concomitant]
     Active Substance: RIVAROXABAN
     Dosage: 15 MILLIGRAM, Q8H (HOME THERAPY: - RIVAROXABAN 15 MG 1 TABLET 8 HOURS)
     Route: 065
  7. METFORMIN HYDROCHLORIDE [Concomitant]
     Active Substance: METFORMIN HYDROCHLORIDE
     Dosage: 850 MILLIGRAM, QD (METFORMIN 850 MG 1 TABLET AT 8 PM, 1 TABLET AT 8 PM)
     Route: 065
  8. PANTOPRAZOLE [Concomitant]
     Active Substance: PANTOPRAZOLE
     Dosage: 40 MILLIGRAM, Q8H (PANTOPRAZOLE 40 MG 1 TABLET 8 HOURS)
     Route: 065
  9. CARVEDILOL [Concomitant]
     Active Substance: CARVEDILOL
     Dosage: 25 MILLIGRAM, QD (25 MG 1 TABLET AT 8 AM, 1 TABLET AT 8 PM)
     Route: 065

REACTIONS (4)
  - Haematuria [Recovering/Resolving]
  - Gingival bleeding [Recovering/Resolving]
  - Rectal haemorrhage [Recovering/Resolving]
  - Pancytopenia [Recovering/Resolving]

NARRATIVE: CASE EVENT DATE: 20240728
